FAERS Safety Report 8984451 (Version 1)
Quarter: 2012Q4

REPORT INFORMATION
  Report Type: 
  Country: US (occurrence: US)
  Receive Date: 20121226
  Receipt Date: 20121226
  Transmission Date: 20130627
  Serious: No
  Sender: FDA-Public Use
  Company Number: US-BAYER-2012-126421

PATIENT
  Sex: Female

DRUGS (15)
  1. AVELOX [Suspect]
  2. TYLENOL #3 [Concomitant]
     Dosage: 1 DF, TID
     Route: 048
  3. SYMBICORT [Concomitant]
     Dosage: 2 puffs , BID
  4. ZYRTEC [Concomitant]
     Dosage: 1 DF, QD
     Route: 048
  5. CLARINEX [DESLORATADINE] [Concomitant]
     Dosage: 1 DF, QD
     Route: 048
  6. VITAMIN B12 [Concomitant]
     Dosage: 2500 mcg,QD
     Route: 060
  7. FLEXERIL [Concomitant]
     Indication: MUSCLE SPASM
     Dosage: 1 DF, TID
     Route: 048
  8. CARDIZEM [Concomitant]
     Dosage: 1 DF, BID
     Route: 048
  9. ESTRACE [Concomitant]
     Dosage: 1 DF, QD
     Route: 048
  10. DIFLUCAN [Concomitant]
     Dosage: 1 DF,every 2 days
     Route: 048
  11. NEURONTIN [Concomitant]
     Dosage: 1 DF, TID
     Route: 048
  12. GLUCOTROL XL [Concomitant]
     Dosage: 1 DF, QD
     Route: 048
  13. GLIPIZIDE [Concomitant]
     Dosage: 1 DF, BID
     Route: 048
  14. VISTARIL [Concomitant]
     Dosage: 1 DF, TID
     Route: 048
  15. IMDUR [Concomitant]
     Dosage: 2 DF, QD
     Route: 048

REACTIONS (3)
  - Drug hypersensitivity [None]
  - Nausea [None]
  - Vomiting [None]
